FAERS Safety Report 18479975 (Version 1)
Quarter: 2020Q4

REPORT INFORMATION
  Report Type: Spontaneous
  Country: KR (occurrence: KR)
  Receive Date: 20201109
  Receipt Date: 20201109
  Transmission Date: 20210114
  Serious: Yes (Hospitalization, Other)
  Sender: FDA-Public Use
  Company Number: KR-MICRO LABS LIMITED-ML2020-03267

PATIENT
  Age: 69 Year
  Sex: Male

DRUGS (6)
  1. TELMISARTAN. [Suspect]
     Active Substance: TELMISARTAN
  2. DRONEDARONE [Suspect]
     Active Substance: DRONEDARONE
     Indication: ATRIAL FIBRILLATION
  3. VORICONAZOLE. [Suspect]
     Active Substance: VORICONAZOLE
     Indication: BRONCHOPULMONARY ASPERGILLOSIS
  4. AMLODIPINE [Suspect]
     Active Substance: AMLODIPINE BESYLATE
  5. SPIRONOLACTONE. [Suspect]
     Active Substance: SPIRONOLACTONE
  6. VORICONAZOLE. [Suspect]
     Active Substance: VORICONAZOLE
     Route: 048

REACTIONS (2)
  - Drug interaction [Recovered/Resolved]
  - Hyperkalaemia [Recovered/Resolved]
